FAERS Safety Report 20301169 (Version 1)
Quarter: 2022Q1

REPORT INFORMATION
  Report Type: Spontaneous
  Country: US (occurrence: US)
  Receive Date: 20220105
  Receipt Date: 20220105
  Transmission Date: 20220423
  Serious: Yes (Other)
  Sender: FDA-Public Use
  Company Number: US-SUNOVION-2021SUN004832

PATIENT
  Sex: Female

DRUGS (4)
  1. APTIOM [Suspect]
     Active Substance: ESLICARBAZEPINE ACETATE
     Indication: Partial seizures
     Dosage: 400 MG, QD
     Route: 048
  2. APTIOM [Suspect]
     Active Substance: ESLICARBAZEPINE ACETATE
     Dosage: 800 MG, QD (2 TABS OF 400MG)
     Route: 048
     Dates: start: 202112
  3. ZONISAMIDE [Concomitant]
     Active Substance: ZONISAMIDE
     Dosage: 300 MG, HS
  4. ZONISAMIDE [Concomitant]
     Active Substance: ZONISAMIDE
     Dosage: 200 MG, HS
     Dates: start: 202112

REACTIONS (2)
  - Seizure [Unknown]
  - Therapeutic response unexpected [Unknown]
